FAERS Safety Report 5162454-5 (Version None)
Quarter: 2006Q4

REPORT INFORMATION
  Report Type: 
  Country: None (occurrence: None)
  Receive Date: 20061129
  Receipt Date: 20061129
  Transmission Date: 20070319
  Serious: Yes (Hospitalization)
  Sender: FDA-Public Use
  Company Number: None

PATIENT
  Age: 54 Year
  Sex: Female
  Weight: 71 kg

DRUGS (2)
  1. ATORVASTATIN CALCIUM [Suspect]
     Indication: HYPERLIPIDAEMIA
     Dosage: PO  2 WKS PRIOR TO 9/28/2006
     Route: 048
  2. HYDROCODONE BITARTRATE + ACETAMINOPHEN [Suspect]
     Indication: PAIN
     Dosage: PO
     Route: 048

REACTIONS (11)
  - ARTHRALGIA [None]
  - BLOOD ALBUMIN INCREASED [None]
  - GLOMERULAR FILTRATION RATE DECREASED [None]
  - HAEMATEMESIS [None]
  - MALAISE [None]
  - MYALGIA [None]
  - NAUSEA [None]
  - PAIN [None]
  - PRESYNCOPE [None]
  - TREATMENT NONCOMPLIANCE [None]
  - VOMITING [None]
